FAERS Safety Report 12738177 (Version 2)
Quarter: 2018Q2

REPORT INFORMATION
  Report Type: Spontaneous
  Country: US (occurrence: US)
  Receive Date: 20160912
  Receipt Date: 20180515
  Transmission Date: 20180711
  Serious: No
  Sender: FDA-Public Use
  Company Number: US-SA-2016SA124378

PATIENT
  Age: 80 Year
  Sex: Female

DRUGS (2)
  1. SOLOSTAR [Concomitant]
     Active Substance: DEVICE
     Dates: start: 20160330
  2. TOUJEO [Suspect]
     Active Substance: INSULIN GLARGINE
     Dosage: 56 UNITS, 42 UN AM AND PM RESP.
     Route: 065
     Dates: start: 20160330

REACTIONS (1)
  - Product use issue [Unknown]
